FAERS Safety Report 4653975-X (Version None)
Quarter: 2005Q2

REPORT INFORMATION
  Report Type: 
  Country: None (occurrence: None)
  Receive Date: 20050504
  Receipt Date: 20050422
  Transmission Date: 20051028
  Serious: Yes (Hospitalization)
  Sender: FDA-Public Use
  Company Number: 6014438

PATIENT
  Age: 42 Year
  Sex: Female

DRUGS (3)
  1. CARDENSIEL (TABLET) (BISOPROLOL) [Suspect]
     Indication: HYPERTENSION
     Dosage: 1,25 MG (1,25 MG, 1 D) ORAL
     Route: 048
     Dates: start: 20050205, end: 20050405
  2. PROFENID (TABLET) (KETOPROFEN) [Suspect]
     Indication: MIGRAINE
     Dosage: ORAL
     Route: 048
     Dates: start: 20041015
  3. LEVONORGESTREL AND ETHINYL ESTRADIOL [Concomitant]

REACTIONS (9)
  - BLOOD IMMUNOGLOBULIN A INCREASED [None]
  - COLITIS [None]
  - CREATINE PHOSPHOKINASE DECREASED [None]
  - HAEMATURIA [None]
  - HENOCH-SCHONLEIN PURPURA [None]
  - INFLAMMATION [None]
  - PROTEINURIA [None]
  - RENAL DISORDER [None]
  - VIRUS SEROLOGY TEST POSITIVE [None]
